FAERS Safety Report 10208385 (Version 3)
Quarter: 2014Q3

REPORT INFORMATION
  Report Type: Spontaneous
  Country: IT (occurrence: IT)
  Receive Date: 20140530
  Receipt Date: 20140714
  Transmission Date: 20150326
  Serious: Yes (Hospitalization, Other)
  Sender: FDA-Public Use
  Company Number: IT-PFIZER INC-2014146893

PATIENT
  Age: 35 Year
  Sex: Male

DRUGS (2)
  1. AZITHROMYCIN [Suspect]
     Active Substance: AZITHROMYCIN ANHYDROUS
     Dosage: 1 DF, TOTAL
     Route: 048
     Dates: start: 20140412, end: 20140412
  2. OKI [Concomitant]
     Active Substance: KETOPROFEN LYSINE
     Dosage: UNK

REACTIONS (2)
  - Dyspnoea [Recovering/Resolving]
  - Vasoconstriction [Unknown]

NARRATIVE: CASE EVENT DATE: 20140412
